FAERS Safety Report 7747668-X (Version None)
Quarter: 2011Q3

REPORT INFORMATION
  Report Type: 
  Country: None (occurrence: None)
  Receive Date: 20110909
  Receipt Date: 20110727
  Transmission Date: 20111222
  Serious: Yes (Hospitalization)
  Sender: FDA-Public Use
  Company Number: 2011GW000474

PATIENT
  Age: 46 Year
  Sex: Female

DRUGS (1)
  1. ORPHENADRINE CITRATE [Suspect]
     Indication: SUICIDE ATTEMPT
     Dosage: 4000 MG;X1;PO
     Route: 048

REACTIONS (14)
  - BLOOD PRESSURE INCREASED [None]
  - NAUSEA [None]
  - INTENTIONAL OVERDOSE [None]
  - STATUS EPILEPTICUS [None]
  - STUPOR [None]
  - HEART RATE INCREASED [None]
  - RHABDOMYOLYSIS [None]
  - SUICIDE ATTEMPT [None]
  - DRY SKIN [None]
  - BODY TEMPERATURE INCREASED [None]
  - CONVULSION [None]
  - JOINT DISLOCATION [None]
  - SELF-MEDICATION [None]
  - CERVICOBRACHIAL SYNDROME [None]
